FAERS Safety Report 8780603 (Version 1)
Quarter: 2012Q4

REPORT INFORMATION
  Report Type: Report from Study
  Country: JP (occurrence: JP)
  Receive Date: 20120913
  Receipt Date: 20120913
  Transmission Date: 20130627
  Serious: Yes (Hospitalization)
  Sender: FDA-Public Use
  Company Number: JP-ASTRAZENECA-2012SE70599

PATIENT
  Age: 31299 Day
  Sex: Male

DRUGS (25)
  1. AZD6140 [Suspect]
     Indication: CORONARY ARTERY DISEASE
     Route: 048
     Dates: start: 20111125
  2. PURSENID [Concomitant]
     Indication: CONSTIPATION
     Route: 048
     Dates: start: 20120727
  3. URALYT [Concomitant]
     Indication: HYPERURICAEMIA
     Route: 048
  4. MUCODYNE [Concomitant]
     Indication: ASTHMA
     Route: 048
  5. MUCODYNE [Concomitant]
     Indication: CHRONIC OBSTRUCTIVE PULMONARY DISEASE
     Route: 048
  6. JUVELA N [Concomitant]
     Indication: HYPERLIPIDAEMIA
     Route: 048
  7. ZYLORIC [Concomitant]
     Indication: HYPERURICAEMIA
     Route: 048
  8. ACTOS [Concomitant]
     Indication: TYPE 2 DIABETES MELLITUS
     Route: 048
     Dates: start: 20120728
  9. SOLETON [Concomitant]
     Indication: OSTEOARTHRITIS
     Route: 048
  10. NORVASC [Concomitant]
     Indication: HYPERTENSION
     Route: 048
  11. LIPITOR [Concomitant]
     Indication: HYPERLIPIDAEMIA
     Route: 048
  12. BASEN OD [Concomitant]
     Indication: TYPE 2 DIABETES MELLITUS
     Route: 048
     Dates: start: 20120127
  13. AMARYL [Concomitant]
     Indication: TYPE 2 DIABETES MELLITUS
     Route: 048
  14. PREDNISOLONE [Concomitant]
     Indication: ASTHMA
     Route: 048
  15. SINGULAIR [Concomitant]
     Indication: ASTHMA
     Route: 048
  16. MUCOSOLVAN L [Concomitant]
     Indication: ASTHMA
     Route: 048
  17. MUCOSOLVAN L [Concomitant]
     Indication: CHRONIC OBSTRUCTIVE PULMONARY DISEASE
     Route: 048
  18. ADOAIR [Concomitant]
     Indication: ASTHMA
     Route: 055
  19. SOLON [Concomitant]
     Indication: GASTRITIS PROPHYLAXIS
     Route: 048
  20. LASIX [Concomitant]
     Indication: CARDIOVASCULAR EVENT PROPHYLAXIS
     Route: 048
  21. SIGMART [Concomitant]
     Indication: VASODILATION PROCEDURE
  22. JANUVIA [Concomitant]
     Indication: TYPE 2 DIABETES MELLITUS
     Route: 048
  23. ALLEGRA [Concomitant]
     Indication: SEASONAL ALLERGY
     Route: 048
  24. GASTER [Concomitant]
     Indication: GASTRITIS PROPHYLAXIS
     Route: 048
     Dates: start: 20120622
  25. ASA [Concomitant]
     Route: 048

REACTIONS (1)
  - Pneumonia [Not Recovered/Not Resolved]
